FAERS Safety Report 8795678 (Version 4)
Quarter: 2013Q2

REPORT INFORMATION
  Report Type: Spontaneous
  Country: US (occurrence: US)
  Receive Date: 20120920
  Receipt Date: 20130415
  Transmission Date: 20140414
  Serious: Yes (Other)
  Sender: FDA-Public Use
  Company Number: US-PFIZER INC-2012231490

PATIENT
  Sex: Female

DRUGS (1)
  1. LYRICA [Suspect]
     Dosage: 50 MG, 2X/DAY

REACTIONS (9)
  - Type 2 diabetes mellitus [Unknown]
  - Drug ineffective [Unknown]
  - Pain [Unknown]
  - Neuropathy peripheral [Unknown]
  - Pain in extremity [Unknown]
  - Insomnia [Unknown]
  - Emotional disorder [Unknown]
  - Abnormal behaviour [Unknown]
  - Feeling abnormal [Unknown]
